FAERS Safety Report 8024362-1 (Version None)
Quarter: 2012Q1

REPORT INFORMATION
  Report Type: 
  Country: None (occurrence: None)
  Receive Date: 20120105
  Receipt Date: 20120103
  Transmission Date: 20120608
  Serious: Yes (Other)
  Sender: FDA-Public Use
  Company Number: PHHY2011NL96529

PATIENT
  Sex: Female

DRUGS (8)
  1. ZOMETA [Suspect]
     Dosage: 4 MG/5 ML, ONCE 21 DAYS IV 230 ML/H
     Dates: start: 20111011
  2. ZOMETA [Suspect]
     Dosage: 4 MG/100ML ONCE PER 28 DAYS
     Dates: start: 20111213
  3. OXYCODONE HCL [Concomitant]
  4. ZOMETA [Suspect]
     Dosage: 4 MG/100ML ONCE PER 28 DAYS
     Dates: start: 20120103
  5. OXYCONTIN [Concomitant]
  6. ZOMETA [Suspect]
     Dosage: 4 MG/5 ML, ONCE 21 DAYS IV 230 ML/H
     Dates: start: 20111101
  7. ZOMETA [Suspect]
     Indication: BREAST CANCER METASTATIC
     Dosage: 4 MG/5 ML, ONCE 21 DAYS IV 230 ML/H
     Dates: start: 20110809
  8. ZOMETA [Suspect]
     Dosage: 4 MG/5 ML, ONCE 21 DAYS IV 230 ML/H
     Dates: start: 20111122

REACTIONS (3)
  - GENERAL PHYSICAL HEALTH DETERIORATION [None]
  - ASTHENIA [None]
  - FATIGUE [None]
